FAERS Safety Report 5945884-0 (Version None)
Quarter: 2008Q4

REPORT INFORMATION
  Report Type: 
  Country: None (occurrence: None)
  Receive Date: 20081110
  Receipt Date: 20081103
  Transmission Date: 20090506
  Serious: Yes (Life-Threatening, Hospitalization, Disabling)
  Sender: FDA-Public Use
  Company Number: US-JNJFOC-20070904798

PATIENT
  Sex: Female
  Weight: 111.59 kg

DRUGS (13)
  1. LEVAQUIN [Suspect]
     Indication: PNEUMONIA
     Route: 048
  2. LEVAQUIN [Suspect]
     Indication: NASOPHARYNGITIS
     Route: 048
  3. LEVAQUIN [Suspect]
     Indication: SINUSITIS
     Route: 048
  4. POTASSIUM CHLORIDE [Concomitant]
     Route: 065
  5. SULFUR LOTION [Concomitant]
     Route: 065
  6. GLYBURIDE [Concomitant]
     Indication: DIABETES MELLITUS
     Route: 048
  7. BETAMETHASONE [Concomitant]
     Indication: RASH
  8. SINGULAIR [Concomitant]
     Indication: ASTHMA
     Route: 048
  9. ZYLET [Concomitant]
     Route: 047
  10. TEGRETOL [Concomitant]
     Indication: CONVULSION
     Route: 048
  11. ZANTAC [Concomitant]
     Indication: GASTRIC DISORDER
     Route: 048
  12. DAPSONE [Concomitant]
     Indication: PRURITUS
     Route: 048
  13. ATARAX [Concomitant]
     Indication: NERVOUSNESS
     Route: 048

REACTIONS (18)
  - ALOPECIA [None]
  - ASTHENIA [None]
  - DYSPNOEA [None]
  - FEELING ABNORMAL [None]
  - GLAUCOMA [None]
  - HYPERSENSITIVITY [None]
  - LOCALISED INFECTION [None]
  - OEDEMA PERIPHERAL [None]
  - PAIN [None]
  - PSORIASIS [None]
  - RASH GENERALISED [None]
  - RASH PRURITIC [None]
  - SKIN EXFOLIATION [None]
  - SKIN LESION [None]
  - SKIN ODOUR ABNORMAL [None]
  - STAPHYLOCOCCAL SCALDED SKIN SYNDROME [None]
  - STEVENS-JOHNSON SYNDROME [None]
  - SWELLING [None]
